FAERS Safety Report 7475421-3 (Version None)
Quarter: 2011Q2

REPORT INFORMATION
  Report Type: 
  Country: None (occurrence: None)
  Receive Date: 20110510
  Receipt Date: 20110510
  Transmission Date: 20111010
  Serious: Yes (Death)
  Sender: FDA-Public Use
  Company Number: None

PATIENT
  Age: 70 Year
  Sex: Female
  Weight: 108.8633 kg

DRUGS (1)
  1. DROTRECOGIN ALPHA /15MG/75ML@14.4ML/HR [Suspect]
     Indication: SEPSIS
     Dosage: 15MG/75ML DRIP IV
     Route: 041
     Dates: start: 20110423, end: 20110424

REACTIONS (5)
  - HAEMORRHAGE INTRACRANIAL [None]
  - MOUTH HAEMORRHAGE [None]
  - BRADYCARDIA [None]
  - CARDIAC ARREST [None]
  - HAEMORRHAGE [None]
